FAERS Safety Report 8002639-3 (Version None)
Quarter: 2011Q4

REPORT INFORMATION
  Report Type: 
  Country: None (occurrence: None)
  Receive Date: 20111222
  Receipt Date: 20111215
  Transmission Date: 20120403
  Serious: Yes (Hospitalization)
  Sender: FDA-Public Use
  Company Number: JP-GLAXOSMITHKLINE-B0770236A

PATIENT
  Sex: Female
  Weight: 54 kg

DRUGS (12)
  1. RISEDRONATE SODIUM [Concomitant]
     Indication: OSTEOPOROSIS
     Route: 048
     Dates: end: 20101022
  2. TYKERB [Suspect]
     Indication: BREAST CANCER
     Dosage: 1250MG PER DAY
     Route: 048
     Dates: start: 20091221
  3. MIYA BM [Concomitant]
     Indication: DYSPEPSIA
     Route: 048
     Dates: end: 20101022
  4. MELOXICAM [Concomitant]
     Indication: OSTEOPOROSIS
     Route: 048
     Dates: end: 20101020
  5. UNKNOWN DRUG [Concomitant]
     Indication: CHRONIC HEPATITIS
     Route: 042
     Dates: end: 20100921
  6. CHINESE MEDICINE [Concomitant]
     Indication: GASTRITIS
     Route: 048
     Dates: end: 20101022
  7. FUROSEMIDE [Concomitant]
     Indication: OEDEMA
     Route: 042
     Dates: end: 20101022
  8. IRON SUCROSE [Concomitant]
     Indication: IRON DEFICIENCY ANAEMIA
     Route: 042
     Dates: end: 20101021
  9. XELODA [Suspect]
     Dosage: 2400MG PER DAY
     Route: 048
     Dates: start: 20100125
  10. OMEPRAZOLE [Concomitant]
     Indication: GASTROOESOPHAGEAL REFLUX DISEASE
     Route: 048
     Dates: end: 20101022
  11. ELCITONIN [Concomitant]
     Indication: OSTEOPOROSIS
     Route: 030
     Dates: end: 20100921
  12. BEZATATE [Concomitant]
     Indication: HYPERLIPIDAEMIA
     Route: 048
     Dates: end: 20100714

REACTIONS (1)
  - WOUND INFECTION [None]
